FAERS Safety Report 10632477 (Version 2)
Quarter: 2014Q4

REPORT INFORMATION
  Report Type: Spontaneous
  Country: US (occurrence: US)
  Receive Date: 20141205
  Receipt Date: 20141205
  Transmission Date: 20150529
  Serious: Yes (Hospitalization)
  Sender: FDA-Public Use
  Company Number: US-BRISTOL-MYERS SQUIBB COMPANY-21511316

PATIENT
  Age: 59 Year
  Sex: Male

DRUGS (1)
  1. SPRYCEL [Suspect]
     Active Substance: DASATINIB
     Indication: ACUTE LYMPHOCYTIC LEUKAEMIA
     Dosage: 100MG/DAY
     Route: 048
     Dates: start: 20140725

REACTIONS (4)
  - Malignant neoplasm progression [Unknown]
  - Dyspnoea [Unknown]
  - Pyrexia [Unknown]
  - Pleural effusion [Unknown]

NARRATIVE: CASE EVENT DATE: 2014
